FAERS Safety Report 25311927 (Version 1)
Quarter: 2025Q2

REPORT INFORMATION
  Report Type: Spontaneous
  Country: US (occurrence: US)
  Receive Date: 20250514
  Receipt Date: 20250514
  Transmission Date: 20250716
  Serious: Yes (Other)
  Sender: HIKMA
  Company Number: US-HIKMA PHARMACEUTICALS USA INC.-US-H14001-25-04102

PATIENT
  Age: 22 Year
  Sex: Male

DRUGS (4)
  1. ACETAMINOPHEN [Suspect]
     Active Substance: ACETAMINOPHEN
     Indication: Stiff person syndrome
     Dosage: 975 MILLIGRAM, TID
     Route: 065
  2. CYCLOBENZAPRINE [Suspect]
     Active Substance: CYCLOBENZAPRINE
     Indication: Stiff person syndrome
     Dosage: 10 MILLIGRAM, Q8H
     Route: 065
  3. METHOCARBAMOL [Suspect]
     Active Substance: METHOCARBAMOL
     Indication: Stiff person syndrome
     Dosage: 1000 MILLIGRAM, Q8H
     Route: 042
  4. METHOCARBAMOL [Suspect]
     Active Substance: METHOCARBAMOL
     Route: 042

REACTIONS (3)
  - Hypoxia [Unknown]
  - Deep vein thrombosis [Unknown]
  - Concussion [Unknown]
